FAERS Safety Report 5448992-6 (Version None)
Quarter: 2007Q3

REPORT INFORMATION
  Report Type: 
  Country: None (occurrence: None)
  Receive Date: 20070911
  Receipt Date: 20070904
  Transmission Date: 20080115
  Serious: Yes (Other)
  Sender: FDA-Public Use
  Company Number: DE-ROCHE-511759

PATIENT
  Age: 45 Year
  Sex: Female
  Weight: 60 kg

DRUGS (2)
  1. PEGASYS [Suspect]
     Dosage: DOSAGE: 180MCG/WEEK
     Route: 058
     Dates: start: 20061116
  2. COPEGUS [Concomitant]
     Route: 048
     Dates: start: 20061116

REACTIONS (1)
  - IRITIS [None]
